FAERS Safety Report 6299949-7 (Version None)
Quarter: 2009Q3

REPORT INFORMATION
  Report Type: 
  Country: None (occurrence: None)
  Receive Date: 20090806
  Receipt Date: 20090803
  Transmission Date: 20100115
  Serious: Yes (Other)
  Sender: FDA-Public Use
  Company Number: US-ASTRAZENECA-2009UW21688

PATIENT
  Age: 57 Year
  Sex: Male
  Weight: 75.3 kg

DRUGS (5)
  1. NEXIUM [Suspect]
     Indication: GASTROOESOPHAGEAL REFLUX DISEASE
     Route: 048
     Dates: start: 20010101
  2. NEXIUM [Suspect]
     Route: 048
     Dates: start: 20090101, end: 20090101
  3. NEXIUM [Suspect]
     Route: 048
  4. ASPIRIN [Concomitant]
     Dates: start: 20060101
  5. TENORMIN [Concomitant]
     Indication: CARDIAC DISORDER
     Route: 048

REACTIONS (5)
  - ABDOMINAL DISCOMFORT [None]
  - CORONARY ARTERIAL STENT INSERTION [None]
  - GASTRITIS [None]
  - HEADACHE [None]
  - OESOPHAGITIS [None]
